FAERS Safety Report 21312764 (Version 1)
Quarter: 2022Q3

REPORT INFORMATION
  Report Type: Spontaneous
  Country: FR (occurrence: FR)
  Receive Date: 20220909
  Receipt Date: 20220909
  Transmission Date: 20221026
  Serious: Yes (Other)
  Sender: FDA-Public Use
  Company Number: None

PATIENT
  Age: 56 Year
  Sex: Male
  Weight: 109 kg

DRUGS (3)
  1. METHOTREXATE [Suspect]
     Active Substance: METHOTREXATE
     Indication: Rheumatoid arthritis
     Dates: start: 2019
  2. NAPROXEN [Suspect]
     Active Substance: NAPROXEN
     Indication: Pain
     Dosage: STRENGTH- 550 MG, SCORED FILM-COATED TABLET
     Dates: start: 20220422, end: 20220426
  3. TOCILIZUMAB [Suspect]
     Active Substance: TOCILIZUMAB
     Indication: Rheumatoid arthritis
     Dosage: STRENGTH-162 MG, SOLUTION FOR INJECTION IN PRE-FILLED SYRINGE
     Dates: start: 2019

REACTIONS (1)
  - Arthritis infective [Recovering/Resolving]

NARRATIVE: CASE EVENT DATE: 20220501
